FAERS Safety Report 11894193 (Version 2)
Quarter: 2016Q1

REPORT INFORMATION
  Report Type: Report from Study
  Country: DE (occurrence: DE)
  Receive Date: 20160107
  Receipt Date: 20160229
  Transmission Date: 20160526
  Serious: Yes (Hospitalization)
  Sender: FDA-Public Use
  Company Number: DE-ABBVIE-16K-062-1531863-00

PATIENT
  Sex: Male

DRUGS (4)
  1. DIPENTUM [Concomitant]
     Active Substance: OLSALAZINE SODIUM
     Indication: PRODUCT USED FOR UNKNOWN INDICATION
  2. ENTOCORT [Concomitant]
     Active Substance: BUDESONIDE
     Indication: PRODUCT USED FOR UNKNOWN INDICATION
  3. DECORTIN [Concomitant]
     Active Substance: PREDNISONE
     Indication: PRODUCT USED FOR UNKNOWN INDICATION
     Dosage: REDUCED BEFORE SURGERY
  4. HUMIRA [Suspect]
     Active Substance: ADALIMUMAB
     Indication: COLITIS ULCERATIVE
     Route: 058
     Dates: start: 20130301, end: 20150915

REACTIONS (3)
  - Post procedural inflammation [Unknown]
  - Post procedural haemorrhage [Unknown]
  - Colitis [Recovering/Resolving]
